FAERS Safety Report 24961498 (Version 1)
Quarter: 2025Q1

REPORT INFORMATION
  Report Type: Spontaneous
  Country: US (occurrence: US)
  Receive Date: 20250212
  Receipt Date: 20250212
  Transmission Date: 20250409
  Serious: No
  Sender: MERCK SHARP & DOHME LLC
  Company Number: US-PFIZER INC-202500029271

PATIENT
  Age: 54 Year
  Sex: Female

DRUGS (3)
  1. TUKYSA [Suspect]
     Active Substance: TUCATINIB
     Dosage: TAKE 2 150MG TABLETS ORALLY TWICE A DAY
     Route: 048
  2. CAPECITABINE [Concomitant]
     Active Substance: CAPECITABINE
  3. CAPECITABINE [Concomitant]
     Active Substance: CAPECITABINE

REACTIONS (2)
  - Off label use [Unknown]
  - Product prescribing issue [Unknown]
